FAERS Safety Report 11885879 (Version 2)
Quarter: 2016Q1

REPORT INFORMATION
  Report Type: Spontaneous
  Country: US (occurrence: US)
  Receive Date: 20160104
  Receipt Date: 20160216
  Transmission Date: 20160526
  Serious: No
  Sender: FDA-Public Use
  Company Number: US-LEO PHARMA-239389

PATIENT
  Age: 53 Year
  Sex: Female

DRUGS (2)
  1. VITAMIN D [Concomitant]
     Active Substance: CHOLECALCIFEROL
     Indication: PRODUCT USED FOR UNKNOWN INDICATION
  2. PICATO [Suspect]
     Active Substance: INGENOL MEBUTATE
     Indication: DRY SKIN
     Route: 061
     Dates: start: 20151223, end: 20151223

REACTIONS (7)
  - Application site exfoliation [Recovered/Resolved]
  - Product use issue [Unknown]
  - Application site vesicles [Recovered/Resolved]
  - Incorrect dose administered [Unknown]
  - Application site pain [Recovered/Resolved]
  - Application site discharge [Recovered/Resolved]
  - Incorrect drug administration duration [Unknown]

NARRATIVE: CASE EVENT DATE: 20151224
